FAERS Safety Report 6445988-2 (Version None)
Quarter: 2009Q4

REPORT INFORMATION
  Report Type: 
  Country: None (occurrence: None)
  Receive Date: 20091119
  Receipt Date: 20090525
  Transmission Date: 20100525
  Serious: No
  Sender: FDA-Public Use
  Company Number: A0787569A

PATIENT
  Age: 62 Year
  Sex: Female

DRUGS (1)
  1. WELLBUTRIN SR [Suspect]
     Indication: DEPRESSION

REACTIONS (1)
  - HEADACHE [None]
